FAERS Safety Report 5280395-X (Version None)
Quarter: 2007Q1

REPORT INFORMATION
  Report Type: 
  Country: None (occurrence: None)
  Receive Date: 20070326
  Receipt Date: 20070326
  Transmission Date: 20070707
  Serious: Yes (Other)
  Sender: FDA-Public Use
  Company Number: None

PATIENT
  Age: 59 Year
  Sex: Female
  Weight: 81.6475 kg

DRUGS (5)
  1. FOSAMAX [Suspect]
     Indication: OSTEOPOROSIS
  2. TOPROL-XL [Concomitant]
  3. PREDNISONE [Concomitant]
  4. COUMADIN [Concomitant]
  5. SYNTHROID [Concomitant]

REACTIONS (2)
  - IMPAIRED HEALING [None]
  - OSTEONECROSIS [None]
